FAERS Safety Report 7794850-1 (Version None)
Quarter: 2011Q4

REPORT INFORMATION
  Report Type: 
  Country: None (occurrence: None)
  Receive Date: 20111004
  Receipt Date: 20110921
  Transmission Date: 20120403
  Serious: Yes (Other)
  Sender: FDA-Public Use
  Company Number: PHHY2011BR84557

PATIENT
  Age: 61 Year
  Sex: Female

DRUGS (7)
  1. EXFORGE [Suspect]
     Indication: HYPERTENSION
     Dosage: 320 MG VALS, 5 MG AMLO
  2. SIMVASTATIN [Concomitant]
     Dosage: 40 MG, QD
  3. LASIX [Concomitant]
     Dosage: 40 MG, QD
  4. SPIRONOLACTONE [Concomitant]
     Dosage: 25 MG, DAILY
  5. METFORMIN HCL [Concomitant]
     Dosage: 2 DF, DAILY
  6. ATENOLOL [Concomitant]
     Dosage: 50 MG, BID
  7. MONOCORDIL [Concomitant]
     Dosage: 20 MG, BID

REACTIONS (6)
  - HEART RATE DECREASED [None]
  - SKIN EXFOLIATION [None]
  - NAUSEA [None]
  - GENERAL PHYSICAL HEALTH DETERIORATION [None]
  - SOMNOLENCE [None]
  - PRURITUS [None]
